FAERS Safety Report 16055330 (Version 3)
Quarter: 2022Q1

REPORT INFORMATION
  Report Type: Other
  Country: IT (occurrence: None)
  Receive Date: 20190311
  Receipt Date: 20220110
  Transmission Date: 20220423
  Serious: Yes (Death, Other)
  Sender: FDA-Public Use
  Company Number: IT-ROCHE-2279156

PATIENT

DRUGS (3)
  1. RITUXIMAB [Suspect]
     Active Substance: RITUXIMAB
     Indication: Waldenstrom^s macroglobulinaemia refractory
     Dosage: ON DAY 1
     Route: 042
  2. BENDAMUSTINE [Suspect]
     Active Substance: BENDAMUSTINE
     Indication: Waldenstrom^s macroglobulinaemia refractory
     Dosage: ON DAY 1 AND 2
     Route: 042
  3. BORTEZOMIB [Suspect]
     Active Substance: BORTEZOMIB
     Indication: Waldenstrom^s macroglobulinaemia refractory
     Dosage: ON DAY 1, 8, 15 AND 22, EVERY 28 DAYS
     Route: 058

REACTIONS (6)
  - Cerebrovascular accident [Fatal]
  - Pulmonary embolism [Fatal]
  - Rash [Recovered/Resolved]
  - Neutropenia [Unknown]
  - Neurotoxicity [Unknown]
  - Thrombocytopenia [Unknown]
